FAERS Safety Report 18067911 (Version 1)
Quarter: 2020Q3

REPORT INFORMATION
  Report Type: Spontaneous
  Country: JP (occurrence: JP)
  Receive Date: 20200724
  Receipt Date: 20200724
  Transmission Date: 20201103
  Serious: Yes (Other)
  Sender: FDA-Public Use
  Company Number: JP-PFIZER INC-2020280066

PATIENT
  Sex: Male

DRUGS (2)
  1. SOLANAX [Suspect]
     Active Substance: ALPRAZOLAM
     Dosage: AS NEEDED
     Route: 048
  2. LEXOTAN [Concomitant]
     Active Substance: BROMAZEPAM
     Dosage: AS NEEDED
     Route: 048

REACTIONS (2)
  - Bipolar disorder [Unknown]
  - Violence-related symptom [Unknown]

NARRATIVE: CASE EVENT DATE: 202007
